FAERS Safety Report 12821054 (Version 3)
Quarter: 2017Q2

REPORT INFORMATION
  Report Type: Report from Study
  Country: US (occurrence: US)
  Receive Date: 20161007
  Receipt Date: 20170505
  Transmission Date: 20170830
  Serious: Yes (Hospitalization, Other)
  Sender: FDA-Public Use
  Company Number: US-ROCHE-1633344

PATIENT
  Age: 62 Year
  Sex: Female
  Weight: 85.1 kg

DRUGS (4)
  1. VELIPARIB [Suspect]
     Active Substance: VELIPARIB
     Indication: OVARIAN EPITHELIAL CANCER
     Dosage: START DATE OF MOST RECENT 21-DAY TREATMENT CYCLE PRIOR TO THE ONSET OF THE SECOND EPISODE OF NEUTROP
     Route: 048
     Dates: start: 20150311, end: 20160701
  2. PACLITAXEL. [Suspect]
     Active Substance: PACLITAXEL
     Indication: OVARIAN EPITHELIAL CANCER
     Dosage: MOST RECENT DOSE (300 MG) PRIOR TO ENTEROCOLITIS INFECTIOUS AND FEVER ADMINISTERED ON 29/MAY/2015?MO
     Route: 042
     Dates: start: 20150313
  3. CARBOPLATIN. [Suspect]
     Active Substance: CARBOPLATIN
     Indication: OVARIAN EPITHELIAL CANCER
     Dosage: TARGET AUC = 6 MG/ML/MIN?MOST RECENT DOSE (598 MG) PRIOR TO ENTEROCOLITIS INFECTOIUS AND FEVER ADMIN
     Route: 042
     Dates: start: 20150313
  4. BEVACIZUMAB [Suspect]
     Active Substance: BEVACIZUMAB
     Indication: OVARIAN EPITHELIAL CANCER
     Dosage: MOST RECENT DOSE (1302 MG) PRIOR TO THE SECOND EPISODE OF NEUTROPHIL COUNT DECREASED AND FIRST EPISO
     Route: 042
     Dates: start: 20150313, end: 20160701

REACTIONS (14)
  - White blood cell count decreased [Unknown]
  - Small intestinal obstruction [Unknown]
  - Constipation [Unknown]
  - Embolism [Unknown]
  - Enterocolitis infectious [Recovering/Resolving]
  - Anaemia [Unknown]
  - Febrile neutropenia [Recovering/Resolving]
  - Sepsis [Recovering/Resolving]
  - Hypertension [Unknown]
  - Neutrophil count decreased [Unknown]
  - Lung infection [Recovered/Resolved]
  - Platelet count decreased [Unknown]
  - Pyrexia [Recovering/Resolving]
  - Diarrhoea [Unknown]

NARRATIVE: CASE EVENT DATE: 20150427
